FAERS Safety Report 20197119 (Version 1)
Quarter: 2021Q4

REPORT INFORMATION
  Report Type: Spontaneous
  Country: JP (occurrence: JP)
  Receive Date: 20211217
  Receipt Date: 20211217
  Transmission Date: 20220303
  Serious: Yes (Death, Other)
  Sender: FDA-Public Use
  Company Number: JP-AUROBINDO-AUR-APL-2021-051985

PATIENT
  Age: 72 Year
  Sex: Female

DRUGS (1)
  1. FOLOTYN [Suspect]
     Active Substance: PRALATREXATE
     Indication: Cutaneous T-cell lymphoma stage IV
     Dosage: UNK
     Route: 042

REACTIONS (3)
  - Pleural effusion [Fatal]
  - Lung infiltration [Fatal]
  - Ascites [Fatal]
